FAERS Safety Report 10314139 (Version 1)
Quarter: 2014Q3

REPORT INFORMATION
  Report Type: Spontaneous
  Country: BR (occurrence: BR)
  Receive Date: 20140718
  Receipt Date: 20140718
  Transmission Date: 20150326
  Serious: Yes (Other)
  Sender: FDA-Public Use
  Company Number: BR-PFIZER INC-2014196989

PATIENT
  Age: 68 Year
  Sex: Female
  Weight: 70 kg

DRUGS (5)
  1. CELEBRA [Suspect]
     Active Substance: CELECOXIB
     Dosage: 200 MG 1 CAPSULE 2X/DAY
     Route: 048
     Dates: start: 201206, end: 2012
  2. CELEBRA [Suspect]
     Active Substance: CELECOXIB
     Indication: EXOSTOSIS
     Dosage: UNK
     Dates: start: 2012, end: 2012
  3. ATORVASTATIN [Concomitant]
     Active Substance: ATORVASTATIN
     Indication: BLOOD CHOLESTEROL ABNORMAL
     Dosage: 20 MG, 1 CAPSULE ONCE DAILY
     Dates: start: 2006
  4. BENICAR HCT [Concomitant]
     Active Substance: HYDROCHLOROTHIAZIDE\OLMESARTAN MEDOXOMIL
     Indication: HYPERTENSION
     Dosage: 1 DF, 1 CAPSULE ONCE DAILY
     Dates: start: 1976
  5. OMEPRAZOL [Concomitant]
     Active Substance: OMEPRAZOLE
     Indication: ABDOMINAL PAIN UPPER
     Dosage: 1 DF, 1 CAPSULE ONCE DAILY
     Dates: start: 2011

REACTIONS (4)
  - Joint swelling [Unknown]
  - Pain [Unknown]
  - Arthralgia [Unknown]
  - Foot fracture [Unknown]

NARRATIVE: CASE EVENT DATE: 2012
